FAERS Safety Report 4778841-0 (Version None)
Quarter: 2005Q3

REPORT INFORMATION
  Report Type: 
  Country: None (occurrence: None)
  Receive Date: 20050922
  Receipt Date: 20050913
  Transmission Date: 20060218
  Serious: Yes (Other)
  Sender: FDA-Public Use
  Company Number: 12332

PATIENT
  Sex: Female

DRUGS (1)
  1. PACLITAXEL [Suspect]
     Dates: start: 20050913, end: 20050913

REACTIONS (2)
  - CARDIOVASCULAR DISORDER [None]
  - SKIN REACTION [None]
